FAERS Safety Report 23842047 (Version 1)
Quarter: 2024Q2

REPORT INFORMATION
  Report Type: Spontaneous
  Country: CN (occurrence: CN)
  Receive Date: 20240510
  Receipt Date: 20240510
  Transmission Date: 20240716
  Serious: Yes (Other)
  Sender: FDA-Public Use
  Company Number: CN-PFIZER INC-202400104243

PATIENT
  Age: 96 Year
  Sex: Male

DRUGS (2)
  1. MEROPENEM [Suspect]
     Active Substance: MEROPENEM
     Dosage: 1000 MG, 3X/DAY
     Dates: start: 20240418
  2. MEROPENEM [Suspect]
     Active Substance: MEROPENEM
     Dosage: 1000 MG, 3X/DAY
     Dates: end: 20240425

REACTIONS (1)
  - Myelosuppression [Recovering/Resolving]

NARRATIVE: CASE EVENT DATE: 20240425
